FAERS Safety Report 12892962 (Version 3)
Quarter: 2018Q2

REPORT INFORMATION
  Report Type: Spontaneous
  Country: US (occurrence: US)
  Receive Date: 20161028
  Receipt Date: 20180430
  Transmission Date: 20180711
  Serious: Yes (Hospitalization, Other)
  Sender: FDA-Public Use
  Company Number: US-PFIZER INC-2016490560

PATIENT
  Age: 57 Year
  Sex: Female

DRUGS (13)
  1. LETROZOLE. [Concomitant]
     Active Substance: LETROZOLE
     Dosage: UNK
  2. LORAZEPAM. [Concomitant]
     Active Substance: LORAZEPAM
     Dosage: UNK
  3. PERCOCET [Concomitant]
     Active Substance: ACETAMINOPHEN\OXYCODONE HYDROCHLORIDE
     Dosage: UNK
  4. FISH OIL [Concomitant]
     Active Substance: FISH OIL
     Dosage: UNK
  5. COLLAGEN [Concomitant]
     Active Substance: COLLAGEN
     Dosage: UNK
  6. IBRANCE [Suspect]
     Active Substance: PALBOCICLIB
     Dosage: LOWER DOSE
  7. LEVOTHYROXINE SODIUM. [Concomitant]
     Active Substance: LEVOTHYROXINE SODIUM
     Dosage: UNK
  8. XARELTO [Concomitant]
     Active Substance: RIVAROXABAN
     Dosage: UNK
  9. IBRANCE [Suspect]
     Active Substance: PALBOCICLIB
     Indication: BREAST CANCER FEMALE
     Dosage: 75 MG, CYCLIC (EVERY DAY FOR 21 DAYS, THEN 7 DAYS OFF)
     Route: 048
  10. AMLODIPINE BESYLATE. [Concomitant]
     Active Substance: AMLODIPINE BESYLATE
     Dosage: UNK
  11. IBRANCE [Suspect]
     Active Substance: PALBOCICLIB
     Dosage: UNK, DAILY
     Route: 048
     Dates: start: 20140201, end: 201604
  12. IBRANCE [Suspect]
     Active Substance: PALBOCICLIB
     Dosage: 75 MG, DAILY
     Route: 048
     Dates: start: 201604
  13. XGEVA [Concomitant]
     Active Substance: DENOSUMAB
     Dosage: UNK

REACTIONS (10)
  - White blood cell count decreased [Unknown]
  - Musculoskeletal pain [Unknown]
  - Thrombosis [Unknown]
  - Constipation [Unknown]
  - Decreased appetite [Unknown]
  - Pulmonary embolism [Unknown]
  - Fatigue [Unknown]
  - Nausea [Unknown]
  - Memory impairment [Unknown]
  - Pain [Unknown]

NARRATIVE: CASE EVENT DATE: 2016
